FAERS Safety Report 5860480-1 (Version None)
Quarter: 2008Q3

REPORT INFORMATION
  Report Type: 
  Country: None (occurrence: None)
  Receive Date: 20080827
  Receipt Date: 20070926
  Transmission Date: 20090109
  Serious: No
  Sender: FDA-Public Use
  Company Number: US-ABBOTT-07P-163-0418269-00

PATIENT
  Sex: Male
  Weight: 86.26 kg

DRUGS (7)
  1. COATED PDS [Suspect]
     Indication: HIGH DENSITY LIPOPROTEIN DECREASED
     Dosage: AT BEDTIME
     Route: 048
     Dates: start: 20070901
  2. ATORVASTATIN CALCIUM [Concomitant]
     Indication: BLOOD CHOLESTEROL INCREASED
     Route: 048
  3. ACETYLSALICYLIC ACID SRT [Concomitant]
     Indication: DRUG USE FOR UNKNOWN INDICATION
     Route: 048
  4. AMLODIPINE [Concomitant]
     Indication: HYPERTENSION
     Route: 048
  5. TELMISARTAN [Concomitant]
     Indication: HYPERTENSION
     Route: 048
  6. METFORMIN HCL [Concomitant]
     Indication: DIABETES MELLITUS
     Route: 048
  7. BYETTA [Concomitant]
     Indication: DIABETES MELLITUS
     Route: 058

REACTIONS (4)
  - FEELING HOT [None]
  - FLUSHING [None]
  - GENERALISED ERYTHEMA [None]
  - PARAESTHESIA [None]
